FAERS Safety Report 9780107 (Version 1)
Quarter: 2013Q4

REPORT INFORMATION
  Report Type: Spontaneous
  Country: US (occurrence: US)
  Receive Date: 20131223
  Receipt Date: 20131223
  Transmission Date: 20140711
  Serious: Yes (Disabling, Other)
  Sender: FDA-Public Use
  Company Number: US-ELI_LILLY_AND_COMPANY-US201312006377

PATIENT
  Sex: Male

DRUGS (1)
  1. HUMULIN NPH [Suspect]
     Indication: PRODUCT USED FOR UNKNOWN INDICATION
     Dosage: 240 U, QD
     Route: 065

REACTIONS (2)
  - Blindness [Not Recovered/Not Resolved]
  - Incorrect dose administered [Unknown]
